FAERS Safety Report 18622453 (Version 1)
Quarter: 2020Q4

REPORT INFORMATION
  Report Type: Spontaneous
  Country: PT (occurrence: PT)
  Receive Date: 20201216
  Receipt Date: 20201216
  Transmission Date: 20210114
  Serious: Yes (Hospitalization, Other)
  Sender: FDA-Public Use
  Company Number: PT-AUROBINDO-AUR-APL-2020-060295

PATIENT
  Age: 65 Year
  Sex: Male

DRUGS (1)
  1. AMOXICILLIN+CLAVULANIC ACID [Suspect]
     Active Substance: AMOXICILLIN\CLAVULANIC ACID
     Indication: TONSILLITIS
     Dosage: UNK
     Route: 065

REACTIONS (15)
  - Hepatitis cholestatic [Recovered/Resolved]
  - Hepatic enzyme increased [Recovered/Resolved]
  - Faeces pale [Recovered/Resolved]
  - Abdominal distension [Recovered/Resolved]
  - Abdominal pain [Recovered/Resolved]
  - Hyperbilirubinaemia [Recovered/Resolved]
  - Hepatitis [Recovered/Resolved]
  - Decreased appetite [Recovered/Resolved]
  - Cholestasis [Recovered/Resolved]
  - Pain [Recovered/Resolved]
  - Choluria [Recovered/Resolved]
  - Decreased appetite [Unknown]
  - Biliary tract disorder [Recovered/Resolved]
  - Hepatocellular injury [Recovered/Resolved]
  - Pruritus [Recovered/Resolved]
